FAERS Safety Report 5881057-8 (Version None)
Quarter: 2008Q3

REPORT INFORMATION
  Report Type: 
  Country: None (occurrence: None)
  Receive Date: 20080910
  Receipt Date: 20080825
  Transmission Date: 20090109
  Serious: Yes (Other)
  Sender: FDA-Public Use
  Company Number: SP-2006-003261

PATIENT
  Age: 71 Year
  Sex: Female
  Weight: 68.58 kg

DRUGS (4)
  1. OLMESARTAN MEDOXOMIL [Suspect]
     Indication: HYPERTENSION
     Dosage: 10 MG (10 MG,1 IN 1 D),PER ORAL; 20 MG (20 MG,L IN 1 D),PER ORAL
     Route: 048
     Dates: start: 20060215, end: 20060420
  2. OLMESARTAN MEDOXOMIL [Suspect]
     Indication: HYPERTENSION
     Dosage: 10 MG (10 MG,1 IN 1 D),PER ORAL; 20 MG (20 MG,L IN 1 D),PER ORAL
     Route: 048
     Dates: start: 20060421
  3. ASPRIN (ACETYLSALICYLIC ACID)(75 MILLIGRAM)(ACETYLSALICYLIC ACID) [Concomitant]
  4. RAMIPRIL (RAMIPRIL) (5 MILLIGRAM)(RAMIPRIL) [Concomitant]

REACTIONS (3)
  - DRY SKIN [None]
  - ERYTHEMA [None]
  - SKIN EXFOLIATION [None]
